FAERS Safety Report 4297770-2 (Version None)
Quarter: 2004Q1

REPORT INFORMATION
  Report Type: 
  Country: None (occurrence: None)
  Receive Date: 20040126
  Receipt Date: 20031106
  Transmission Date: 20041129
  Serious: No
  Sender: FDA-Public Use
  Company Number: USA031151886

PATIENT
  Sex: Male

DRUGS (5)
  1. STRATTERA [Suspect]
     Indication: ATTENTION DEFICIT/HYPERACTIVITY DISORDER
     Dosage: 20 MG/IN THE MORNING
     Dates: start: 20031106
  2. CONCERTA [Concomitant]
  3. ALLEGRA [Concomitant]
  4. CLONIDINE [Concomitant]
  5. RISPERDAL [Concomitant]

REACTIONS (2)
  - INCOHERENT [None]
  - SOMNOLENCE [None]
